FAERS Safety Report 10150016 (Version 1)
Quarter: 2014Q2

REPORT INFORMATION
  Report Type: Spontaneous
  Country: US (occurrence: None)
  Receive Date: 20140501
  Receipt Date: 20140501
  Transmission Date: 20141212
  Serious: No
  Sender: FDA-Public Use
  Company Number: None

PATIENT
  Age: 59 Year
  Sex: Male

DRUGS (9)
  1. WARFARIN [Suspect]
     Indication: THROMBOSIS
     Route: 048
     Dates: start: 20130924, end: 20130927
  2. ACETAMINOPHEN [Concomitant]
  3. ATORVASTATIN [Concomitant]
  4. HYDROCHLOROTHIAZIDE [Concomitant]
  5. INSULIN ASPART [Concomitant]
  6. INSULIN GLARGINE [Concomitant]
  7. LANSOPRAZOLE [Concomitant]
  8. LOSARTAN [Concomitant]
  9. METOPROLOL [Concomitant]

REACTIONS (3)
  - Haematuria [None]
  - International normalised ratio increased [None]
  - Medication monitoring error [None]
